FAERS Safety Report 6103497-4 (Version None)
Quarter: 2009Q1

REPORT INFORMATION
  Report Type: 
  Country: None (occurrence: None)
  Receive Date: 20090302
  Receipt Date: 20090219
  Transmission Date: 20090719
  Serious: Yes (Other)
  Sender: FDA-Public Use
  Company Number: 197416

PATIENT
  Age: 82 Year
  Sex: Female
  Weight: 75.7053 kg

DRUGS (29)
  1. AMIDATE [Suspect]
     Indication: DRUG USE FOR UNKNOWN INDICATION
     Dates: start: 20081002
  2. (DRUG - NON-SPECIFIED PRODUCT) [Suspect]
     Indication: PNEUMONIA
     Dosage: ^INTERVAL: BID^, INTRAVENOUS
     Route: 042
     Dates: start: 20081002, end: 20081008
  3. VERSED [Suspect]
     Indication: DRUG USE FOR UNKNOWN INDICATION
     Dates: start: 20081002
  4. ASPIRIN [Concomitant]
  5. (COMBIVENT /01033501/) [Concomitant]
  6. FERROUS SULFATE TAB [Concomitant]
  7. (POLYCARBOPHIL) [Concomitant]
  8. ISOSORBIDE MONONITRATE [Concomitant]
  9. (ENOXAPARIN) [Concomitant]
  10. (MAG-OX) [Concomitant]
  11. GUAIFENESIN [Concomitant]
  12. (NOVOLIN /00030501/) [Concomitant]
  13. (PANTOPRAZOLE ) [Concomitant]
  14. (SENNA FRUIT) [Concomitant]
  15. (MONTELUKAST) [Concomitant]
  16. (MEPREDNISONE) [Concomitant]
  17. (SOTALOL) [Concomitant]
  18. SIMVASTATIN [Concomitant]
  19. AVELOX [Concomitant]
  20. VANCOMYCIN HYDROCHLORIDE (STERILE), USP 500MG GLASS FT VIAL (VANCOMYCI [Concomitant]
  21. CALCIUM GLUCONATE [Concomitant]
  22. FENTANYL CITRATE INJECTION, USP, 50 MCG (0.05 MG) FENTANYL/ML (FENTANY [Concomitant]
  23. KAYEXALATE [Concomitant]
  24. PREVACID [Concomitant]
  25. ZOSYN [Concomitant]
  26. DEXTROSE INJ USP 50% (GLUCOSE) [Concomitant]
  27. (PERIDEX /00133002/) [Concomitant]
  28. HYDRALAZINE HCL [Concomitant]
  29. LANTUS [Concomitant]

REACTIONS (3)
  - CARDIO-RESPIRATORY ARREST [None]
  - HYPOKALAEMIA [None]
  - ISCHAEMIC HEPATITIS [None]
